FAERS Safety Report 6408812-X (Version None)
Quarter: 2009Q4

REPORT INFORMATION
  Report Type: 
  Country: None (occurrence: None)
  Receive Date: 20091021
  Receipt Date: 20091015
  Transmission Date: 20100525
  Serious: Yes (Death)
  Sender: FDA-Public Use
  Company Number: B0598462A

PATIENT
  Age: 5 Day
  Sex: Male

DRUGS (1)
  1. FLOLAN [Suspect]
     Indication: PULMONARY HYPERTENSION
     Dosage: 1NGKM UNKNOWN
     Route: 042

REACTIONS (1)
  - PULMONARY HAEMORRHAGE [None]
